FAERS Safety Report 8354178-8 (Version None)
Quarter: 2012Q2

REPORT INFORMATION
  Report Type: 
  Country: None (occurrence: None)
  Receive Date: 20120511
  Receipt Date: 20110909
  Transmission Date: 20120825
  Serious: Yes (Death, Hospitalization)
  Sender: FDA-Public Use
  Company Number: GXKR2010GB02598

PATIENT
  Age: 60 Year
  Sex: Female

DRUGS (11)
  1. CAPECITABINE [Suspect]
     Indication: COLORECTAL CANCER
     Dosage: 1/1 CYCLICAL
     Route: 048
     Dates: start: 20091016
  2. SIMVASTATIN [Concomitant]
  3. AMLODIPINE BESYLATE [Concomitant]
     Dosage: UNK
     Dates: end: 20091027
  4. CAPECITABINE [Suspect]
     Dosage: 1/1 CYCLICAL
     Route: 048
     Dates: start: 20090821
  5. ALENDRONIC ACID [Concomitant]
     Route: 065
  6. DRUG THERAPY NOS [Concomitant]
     Indication: THROMBOSIS PROPHYLAXIS
     Dosage: UNK
     Dates: start: 20090822, end: 20090929
  7. OXALIPLATIN [Suspect]
     Indication: COLORECTAL CANCER
     Dosage: 1/1 CYCLICAL
     Route: 041
     Dates: start: 20091016, end: 20091016
  8. OXALIPLATIN [Suspect]
     Dosage: 1/1 CYCLICAL
     Route: 041
     Dates: start: 20090821, end: 20090821
  9. ADCAL [Concomitant]
  10. AMOXICILLIN [Concomitant]
     Dosage: UNK
     Dates: start: 20090926, end: 20091001
  11. ACETYLSALICYLIC ACID SRT [Concomitant]

REACTIONS (11)
  - LYMPHADENOPATHY [None]
  - PERIPHERAL ISCHAEMIA [None]
  - MYOCARDIAL ISCHAEMIA [None]
  - ABDOMINAL PAIN [None]
  - FEMORAL ARTERY EMBOLISM [None]
  - SINUS TACHYCARDIA [None]
  - DYSPNOEA [None]
  - UROSEPSIS [None]
  - ADENOCARCINOMA [None]
  - PAIN IN EXTREMITY [None]
  - RESPIRATORY ALKALOSIS [None]
